FAERS Safety Report 9032980 (Version 4)
Quarter: 2013Q4

REPORT INFORMATION
  Report Type: Spontaneous
  Country: DE (occurrence: None)
  Receive Date: 20130110
  Receipt Date: 20131217
  Transmission Date: 20140711
  Serious: Yes (Hospitalization)
  Sender: FDA-Public Use
  Company Number: UTC-027389

PATIENT
  Age: 51 Year
  Sex: Female
  Weight: 110 kg

DRUGS (7)
  1. REMODULIN [Suspect]
     Indication: PULMONARY ARTERIAL HYPERTENSION
     Dosage: (0.0167 UG/KG, 1 IN 1 MIN),
     Route: 058
     Dates: start: 20121205
  2. AMITRIPTYLIN (AMITRIPTYLINE HYDROCHLORIDE) [Concomitant]
  3. TORASEMID (TORASEMIDE) [Concomitant]
  4. VOLIBRIS (AMBRISENTAN) [Concomitant]
  5. REVATIO (SILDENAFIL CITRATE) [Concomitant]
  6. PANTOZOL (PANTOPRAZOLE SODIUM) [Concomitant]
  7. MARCUMAR (PHENPROCOUMON) [Concomitant]

REACTIONS (5)
  - Syncope [None]
  - Orthostatic hypotension [None]
  - Haemoglobin decreased [None]
  - Haematocrit decreased [None]
  - Hypotonia [None]
